FAERS Safety Report 10934852 (Version 1)
Quarter: 2015Q1

REPORT INFORMATION
  Report Type: Spontaneous
  Country: US (occurrence: US)
  Receive Date: 20150320
  Receipt Date: 20150320
  Transmission Date: 20150721
  Serious: Yes (Death)
  Sender: FDA-Public Use
  Company Number: US-CIPLA LTD.-2015US02207

PATIENT

DRUGS (4)
  1. OXYCODONE [Suspect]
     Active Substance: OXYCODONE
  2. ETHANOL [Suspect]
     Active Substance: ALCOHOL
  3. CITALOPRAM [Suspect]
     Active Substance: CITALOPRAM HYDROBROMIDE
  4. METOPROLOL [Suspect]
     Active Substance: METOPROLOL

REACTIONS (1)
  - Drug abuse [Fatal]
